FAERS Safety Report 18260082 (Version 1)
Quarter: 2020Q3

REPORT INFORMATION
  Report Type: Spontaneous
  Country: US (occurrence: US)
  Receive Date: 20200913
  Receipt Date: 20200913
  Transmission Date: 20201103
  Serious: Yes (Death, Hospitalization)
  Sender: FDA-Public Use
  Company Number: US-STRIDES ARCOLAB LIMITED-2019SP009940

PATIENT
  Age: 23 Year
  Sex: Male

DRUGS (4)
  1. TACROLIMUS. [Suspect]
     Active Substance: TACROLIMUS
     Indication: IMMUNOSUPPRESSANT DRUG THERAPY
     Dosage: UNK
     Route: 065
  2. METHYLPREDNISOLONE. [Suspect]
     Active Substance: METHYLPREDNISOLONE
     Indication: GRAFT VERSUS HOST DISEASE IN GASTROINTESTINAL TRACT
  3. TACROLIMUS. [Suspect]
     Active Substance: TACROLIMUS
     Indication: GRAFT VERSUS HOST DISEASE IN GASTROINTESTINAL TRACT
  4. METHYLPREDNISOLONE. [Suspect]
     Active Substance: METHYLPREDNISOLONE
     Indication: IMMUNOSUPPRESSANT DRUG THERAPY
     Dosage: UNK
     Route: 065

REACTIONS (18)
  - Muscular weakness [Unknown]
  - Central nervous system infection [Unknown]
  - Leukopenia [Unknown]
  - Sinus pain [Recovered/Resolved]
  - Respiratory depression [Unknown]
  - Paraesthesia [Unknown]
  - Dysuria [Unknown]
  - Pain [Unknown]
  - Spinal cord oedema [Unknown]
  - Subperiosteal abscess [Recovered/Resolved]
  - Cardio-respiratory arrest [Unknown]
  - Thrombocytopenia [Unknown]
  - Monoparesis [Unknown]
  - Headache [Recovered/Resolved]
  - Vision blurred [Recovered/Resolved]
  - Off label use [Unknown]
  - Fusarium infection [Fatal]
  - Sensory disturbance [Unknown]
